FAERS Safety Report 10022019 (Version 2)
Quarter: 2015Q1

REPORT INFORMATION
  Report Type: Spontaneous
  Country: US (occurrence: US)
  Receive Date: 20140319
  Receipt Date: 20150323
  Transmission Date: 20150720
  Serious: Yes (Death, Other)
  Sender: FDA-Public Use
  Company Number: US-009507513-1403USA005854

PATIENT
  Sex: Female

DRUGS (4)
  1. FOSAMAX [Suspect]
     Active Substance: ALENDRONATE SODIUM
     Indication: OSTEOPOROSIS
     Dosage: 10 MG, QD
     Route: 048
     Dates: start: 1995
  2. FOSAMAX [Suspect]
     Active Substance: ALENDRONATE SODIUM
     Dosage: 70 MG, QW
     Route: 048
     Dates: end: 2006
  3. OCUVITE [Concomitant]
     Active Substance: VITAMINS
     Dosage: UNK
     Dates: start: 1996, end: 2012
  4. ASCORBIC ACID. [Concomitant]
     Active Substance: ASCORBIC ACID
     Dosage: 500 MG, UNK
     Dates: start: 1996, end: 2012

REACTIONS (6)
  - Gastrointestinal haemorrhage [Fatal]
  - Pernicious anaemia [Unknown]
  - Chronic obstructive pulmonary disease [Unknown]
  - Femur fracture [Unknown]
  - Dementia [Unknown]
  - Anaemia [Fatal]

NARRATIVE: CASE EVENT DATE: 2006
